FAERS Safety Report 8852445 (Version 1)
Quarter: 2012Q4

REPORT INFORMATION
  Report Type: 
  Country: FR (occurrence: FR)
  Receive Date: 20121022
  Receipt Date: 20121022
  Transmission Date: 20130627
  Serious: Yes (Hospitalization)
  Sender: FDA-Public Use
  Company Number: FR-ABBOTT-12P-056-0997336-00

PATIENT
  Age: 66 Year
  Sex: Male

DRUGS (10)
  1. DEPAKINE CHRONO [Suspect]
     Indication: EPILEPSY
     Dosage: 1 gram,Extended Release, 2 in 1 day
     Route: 048
  2. KEPRA [Concomitant]
     Indication: PRODUCT USED FOR UNKNOWN INDICATION
  3. BISOPROLOL [Concomitant]
     Indication: PRODUCT USED FOR UNKNOWN INDICATION
  4. ADANCOR [Concomitant]
     Indication: PRODUCT USED FOR UNKNOWN INDICATION
  5. DIAMICRON [Concomitant]
     Indication: PRODUCT USED FOR UNKNOWN INDICATION
  6. RAMIPRIL [Concomitant]
     Indication: PRODUCT USED FOR UNKNOWN INDICATION
  7. KARDEGIC [Concomitant]
     Indication: PRODUCT USED FOR UNKNOWN INDICATION
  8. GLUCOPHAGE [Concomitant]
     Indication: PRODUCT USED FOR UNKNOWN INDICATION
  9. PANTOPRAZOLE [Concomitant]
     Indication: PRODUCT USED FOR UNKNOWN INDICATION
  10. JANUMET [Concomitant]
     Indication: PRODUCT USED FOR UNKNOWN INDICATION

REACTIONS (5)
  - Systemic inflammatory response syndrome [Unknown]
  - Malaise [Unknown]
  - Confusional state [Unknown]
  - Oxygen saturation decreased [Unknown]
  - Somnolence [Unknown]
